FAERS Safety Report 11766645 (Version 2)
Quarter: 2015Q4

REPORT INFORMATION
  Report Type: Spontaneous
  Country: GB (occurrence: GB)
  Receive Date: 20151123
  Receipt Date: 20151214
  Transmission Date: 20160304
  Serious: Yes (Life-Threatening, Hospitalization)
  Sender: FDA-Public Use
  Company Number: GB-ACCORD-035474

PATIENT
  Age: 71 Year
  Sex: Male

DRUGS (22)
  1. CARBOPLATIN. [Suspect]
     Active Substance: CARBOPLATIN
     Indication: LARGE CELL LUNG CANCER
     Dosage: ON DAY 1
     Route: 042
     Dates: start: 20150824
  2. BISOPROLOL [Concomitant]
     Active Substance: BISOPROLOL
  3. METFORMIN [Concomitant]
     Active Substance: METFORMIN HYDROCHLORIDE
  4. ENOXAPARIN/ENOXAPARIN SODIUM [Concomitant]
     Indication: ATRIAL FIBRILLATION
     Dosage: 120MG/0.8ML PRE FILLED SYRINGE
     Route: 058
  5. MAGNESIUM GLYCEROPHOSPHATE [Concomitant]
     Active Substance: MAGNESIUM GLYCEROPHOSPHATE
     Dosage: IN THE MORNING, PATIENT NOT TAKING IT
     Dates: start: 20150824
  6. ADCAL-D3 [Concomitant]
     Active Substance: CALCIUM CARBONATE\CHOLECALCIFEROL
     Dates: start: 20150824
  7. CIPROFLOXACIN. [Concomitant]
     Active Substance: CIPROFLOXACIN
     Dosage: FOR 12 DAYS 9-20 OF CYCLE
     Dates: start: 20150926, end: 20151007
  8. DEXAMETHASONE. [Concomitant]
     Active Substance: DEXAMETHASONE
     Dosage: PATIENT ALSO RECEIVED 4 MG THREE DAYS POST CHEMO FOR 3 DAYS
     Dates: start: 20150918
  9. ALLOPURINOL. [Concomitant]
     Active Substance: ALLOPURINOL
  10. GLICLAZIDE [Concomitant]
     Active Substance: GLICLAZIDE
     Dosage: IN THE MORNING
  11. SAXAGLIPTIN [Concomitant]
     Active Substance: SAXAGLIPTIN
  12. TAMSULOSIN/TAMSULOSIN HYDROCHLORIDE [Concomitant]
  13. DOMPERIDONE [Concomitant]
     Active Substance: DOMPERIDONE
  14. SIMVASTATIN. [Concomitant]
     Active Substance: SIMVASTATIN
     Dosage: AT NIGHT
  15. ETOPOSIDE. [Suspect]
     Active Substance: ETOPOSIDE
     Indication: LARGE CELL LUNG CANCER
     Dosage: 180 MG ON DAY 1 OF CHEMOTHERAPY, 200 MG BD ON DAYS 2-3.
     Route: 065
     Dates: start: 20150824
  16. MAGNESIUM ASPARTATE/MAGNESIUM ASPARTATE HYDROCHLOR [Concomitant]
     Dosage: TABLETS PRESCRIBED PATIENT USING SACHETS-INCREASED
     Route: 048
  17. OXYBUTYNIN [Concomitant]
     Active Substance: OXYBUTYNIN
     Dosage: IN THE MORNING
  18. SALBUTAMOL [Concomitant]
     Active Substance: ALBUTEROL
     Dosage: PATIENT DIDN^T REALLY USE IT
     Route: 055
     Dates: start: 20150824
  19. ARTIFICIAL SALIVA [Concomitant]
     Dosage: AS DIRECTED
  20. DIGOXIN. [Concomitant]
     Active Substance: DIGOXIN
  21. FUROSEMIDE. [Concomitant]
     Active Substance: FUROSEMIDE
     Dosage: IN THE MORNING
  22. LIDOCAINE. [Concomitant]
     Active Substance: LIDOCAINE
     Dates: start: 20150825

REACTIONS (4)
  - Urinary tract infection [Unknown]
  - Pancytopenia [Recovering/Resolving]
  - Decreased appetite [Unknown]
  - Urosepsis [Unknown]

NARRATIVE: CASE EVENT DATE: 20150930
